FAERS Safety Report 4424723-3 (Version None)
Quarter: 2004Q3

REPORT INFORMATION
  Report Type: 
  Country: None (occurrence: None)
  Receive Date: 20040805
  Receipt Date: 20040726
  Transmission Date: 20050211
  Serious: Yes (Hospitalization, Other)
  Sender: FDA-Public Use
  Company Number: GBWYE843622JUN04

PATIENT
  Age: 46 Year
  Sex: Male

DRUGS (4)
  1. RAPAMUNE [Suspect]
     Indication: IMMUNOSUPPRESSANT DRUG THERAPY
     Dosage: 3 MG DAILY ORAL
     Route: 048
     Dates: start: 20040607, end: 20040616
  2. PERINDOPRIL [Concomitant]
  3. ATENOLOL [Concomitant]
  4. OMEPRAZOLE [Concomitant]

REACTIONS (9)
  - ABDOMINAL PAIN LOWER [None]
  - BACTERAEMIA [None]
  - CHILLS [None]
  - NAUSEA [None]
  - PAIN IN EXTREMITY [None]
  - PYREXIA [None]
  - RASH PRURITIC [None]
  - THROMBOCYTOPENIA [None]
  - VOMITING [None]
